FAERS Safety Report 9265602 (Version 1)
Quarter: 2013Q2

REPORT INFORMATION
  Report Type: Spontaneous
  Country: BS (occurrence: BS)
  Receive Date: 20130501
  Receipt Date: 20130501
  Transmission Date: 20140414
  Serious: Yes (Life-Threatening, Disabling, Other)
  Sender: FDA-Public Use
  Company Number: BS-009507513-1304BHS016686

PATIENT
  Age: 62 Year
  Sex: Male

DRUGS (4)
  1. SITAGLIPTIN PHOSPHATE (+) METFORMIN HYDROCHLORIDE [Suspect]
     Indication: DIABETES MELLITUS
     Dosage: 50/500 MG, BID
     Route: 048
     Dates: end: 201209
  2. VYTORIN [Concomitant]
     Dosage: UNK
     Route: 048
  3. GLUCOBAY [Concomitant]
     Dosage: UNK, BID
  4. EXFORGE [Concomitant]

REACTIONS (1)
  - Pancreatic carcinoma [Not Recovered/Not Resolved]
